FAERS Safety Report 7046529-1 (Version None)
Quarter: 2010Q4

REPORT INFORMATION
  Report Type: 
  Country: None (occurrence: None)
  Receive Date: 20101014
  Receipt Date: 20101006
  Transmission Date: 20110411
  Serious: Yes (Other)
  Sender: FDA-Public Use
  Company Number: US-NOVEN-10US001390

PATIENT
  Age: 60 Year
  Sex: Female
  Weight: 95.2 kg

DRUGS (11)
  1. PEXEVA [Suspect]
     Indication: FATIGUE
     Dosage: UNK
     Route: 048
  2. PEXEVA [Suspect]
     Indication: ASTHENIA
  3. PREGABALIN [Concomitant]
     Indication: NEURALGIA
     Dosage: 50 MG, QD
     Route: 048
     Dates: start: 20100301
  4. PREGABALIN [Concomitant]
     Dosage: 50 MG, BID
     Route: 048
  5. PREDNISONE [Concomitant]
     Indication: POLYMYALGIA RHEUMATICA
     Dosage: 10MG, MORNING AND 5MG EVENING
     Route: 048
     Dates: start: 20070101
  6. LISINOPRIL AND HYDROCHLOROTHIAZIDE [Concomitant]
     Indication: PRODUCT USED FOR UNKNOWN INDICATION
     Dosage: UNK
     Route: 048
  7. LASIX [Concomitant]
     Indication: FLUID RETENTION
     Dosage: 20 MG, QD
     Route: 048
  8. FOSAMAX [Concomitant]
     Indication: CALCIUM DEFICIENCY
     Dosage: 70 MG, 1/WEEK
     Route: 048
  9. SYNTHROID [Concomitant]
     Indication: HYPOTHYROIDISM
     Dosage: 137MCG 2 TABLETS FOR 2 DAYS + .5 TABLET FOR NEXT 5 DAYS IN A WEEK
     Route: 048
  10. REQUIP [Concomitant]
     Indication: PRODUCT USED FOR UNKNOWN INDICATION
     Dosage: 1 MG, QD
     Route: 048
  11. LOVASTATIN [Concomitant]
     Indication: PRODUCT USED FOR UNKNOWN INDICATION
     Dosage: 40 MG, QD
     Route: 048

REACTIONS (7)
  - ACTIVITIES OF DAILY LIVING IMPAIRED [None]
  - DIZZINESS [None]
  - DYSKINESIA [None]
  - FEAR [None]
  - SYSTEMIC LUPUS ERYTHEMATOSUS [None]
  - THINKING ABNORMAL [None]
  - TREMOR [None]
